FAERS Safety Report 23778804 (Version 4)
Quarter: 2025Q2

REPORT INFORMATION
  Report Type: Report from Study
  Country: US (occurrence: US)
  Receive Date: 20240424
  Receipt Date: 20250416
  Transmission Date: 20250717
  Serious: No
  Sender: ALEXION PHARMACEUTICALS
  Company Number: US-AstraZeneca-CH-00609146A

PATIENT

DRUGS (1)
  1. STRENSIQ [Suspect]
     Active Substance: ASFOTASE ALFA
     Indication: Hypophosphatasia

REACTIONS (15)
  - Genital swelling [Not Recovered/Not Resolved]
  - Dental plaque [Not Recovered/Not Resolved]
  - Pain in extremity [Not Recovered/Not Resolved]
  - pH urine abnormal [Unknown]
  - Genital pain [Not Recovered/Not Resolved]
  - Dysuria [Not Recovered/Not Resolved]
  - Injection site pain [Unknown]
  - Injection site reaction [Unknown]
  - Genital erythema [Not Recovered/Not Resolved]
  - Sensitive skin [Unknown]
  - Burning sensation [Unknown]
  - Weight decreased [Unknown]
  - Oedema [Unknown]
  - Stress [Unknown]
  - Neutralising antibodies positive [Not Recovered/Not Resolved]
